FAERS Safety Report 3443231 (Version 2)
Quarter: 2013Q3

REPORT INFORMATION
  Report Type: Spontaneous
  Country: FR (occurrence: None)
  Receive Date: 20000223
  Receipt Date: 20130814
  Transmission Date: 20140515
  Serious: Yes (Hospitalization)
  Sender: FDA-Public Use
  Company Number: 222039

PATIENT
  Sex: Female
  Weight: 47 kg

DRUGS (1)
  1. INNOHEP (TINZAPARIN SODIUM) [Suspect]
     Indication: JUGULAR VEIN THROMBOSIS
     Dosage: ORAL
     Route: 058
     Dates: start: 20130209, end: 20130508

REACTIONS (4)
  - Uterine haemorrhage [None]
  - Uterine haemorrhage [None]
  - General physical health deterioration [None]
  - General physical health deterioration [None]
